FAERS Safety Report 20551760 (Version 2)
Quarter: 2022Q1

REPORT INFORMATION
  Report Type: Report from Study
  Country: IN (occurrence: IN)
  Receive Date: 20220304
  Receipt Date: 20220331
  Transmission Date: 20220423
  Serious: Yes (Other)
  Sender: FDA-Public Use
  Company Number: IN-NOVARTISPH-NVSC2022IN047608

PATIENT
  Age: 57 Year
  Sex: Female

DRUGS (5)
  1. MIDOSTAURIN [Suspect]
     Active Substance: MIDOSTAURIN
     Indication: Acute myeloid leukaemia
     Dosage: 50 MG, BID (FOR 3 WEEKS, THEN 1 WEEK BREAK)
     Route: 065
     Dates: start: 202103, end: 20210614
  2. MIDOSTAURIN [Suspect]
     Active Substance: MIDOSTAURIN
     Dosage: 50 MG, BID (FOR 3 WEEKS, THEN 1 WEEK BREAK)
     Route: 065
     Dates: start: 202110, end: 20220124
  3. MIDOSTAURIN [Suspect]
     Active Substance: MIDOSTAURIN
     Dosage: 50 MG, BID (FOR 3 WEEKS, THEN 1 WEEK BREAK)
     Route: 065
     Dates: start: 20220125, end: 20220223
  4. MIDOSTAURIN [Suspect]
     Active Substance: MIDOSTAURIN
     Dosage: 50 MG, BID (FOR 3 WEEKS, THEN 1 WEEK BREAK)
     Route: 065
     Dates: start: 20220224
  5. MIDOSTAURIN [Suspect]
     Active Substance: MIDOSTAURIN
     Dosage: 50MG BD (FOR 3 WEEKS THEN 1 WEEK BREAK)
     Route: 065
     Dates: start: 20220325

REACTIONS (6)
  - Seizure [Not Recovered/Not Resolved]
  - Alanine aminotransferase increased [Not Recovered/Not Resolved]
  - Aspartate aminotransferase increased [Not Recovered/Not Resolved]
  - Hypertension [Not Recovered/Not Resolved]
  - Nausea [Not Recovered/Not Resolved]
  - Inappropriate schedule of product administration [Unknown]

NARRATIVE: CASE EVENT DATE: 20220101
